FAERS Safety Report 10090232 (Version 4)
Quarter: 2016Q4

REPORT INFORMATION
  Report Type: Spontaneous
  Country: US (occurrence: US)
  Receive Date: 20140421
  Receipt Date: 20161102
  Transmission Date: 20170206
  Serious: Yes (Death, Life-Threatening, Hospitalization, Disabling, Other)
  Sender: FDA-Public Use
  Company Number: US-JNJFOC-20140413821

PATIENT
  Age: 90 Year
  Sex: Female

DRUGS (2)
  1. XARELTO [Suspect]
     Active Substance: RIVAROXABAN
     Indication: THROMBOSIS
     Dosage: VARYING DOSES OF 15MG AND 20MG
     Route: 048
     Dates: start: 20130826, end: 201311
  2. XARELTO [Suspect]
     Active Substance: RIVAROXABAN
     Indication: DEEP VEIN THROMBOSIS
     Dosage: VARYING DOSES OF 15MG AND 20MG
     Route: 048
     Dates: start: 20130826, end: 201311

REACTIONS (7)
  - Blindness [Unknown]
  - Gastrointestinal haemorrhage [Recovering/Resolving]
  - Haemorrhagic stroke [Unknown]
  - Acute kidney injury [Recovered/Resolved]
  - Eye haemorrhage [Unknown]
  - Death [Fatal]
  - Internal haemorrhage [Unknown]

NARRATIVE: CASE EVENT DATE: 20130918
